FAERS Safety Report 5519473-6 (Version None)
Quarter: 2007Q4

REPORT INFORMATION
  Report Type: 
  Country: None (occurrence: None)
  Receive Date: 20071116
  Receipt Date: 20071108
  Transmission Date: 20080405
  Serious: Yes (Hospitalization)
  Sender: FDA-Public Use
  Company Number: CM-MERCK-0711USA02066

PATIENT
  Age: 55 Year
  Sex: Male

DRUGS (1)
  1. STROMECTOL [Suspect]
     Indication: ONCHOCERCIASIS
     Route: 048
     Dates: start: 20071012, end: 20071012

REACTIONS (9)
  - APHASIA [None]
  - ASTHENIA [None]
  - DIARRHOEA [None]
  - ENCEPHALOPATHY [None]
  - FILARIASIS [None]
  - NECK PAIN [None]
  - PAIN [None]
  - URINARY INCONTINENCE [None]
  - VOMITING [None]
